FAERS Safety Report 7242612-6 (Version None)
Quarter: 2011Q1

REPORT INFORMATION
  Report Type: 
  Country: None (occurrence: None)
  Receive Date: 20110125
  Receipt Date: 20110119
  Transmission Date: 20110831
  Serious: Yes (Hospitalization, Other)
  Sender: FDA-Public Use
  Company Number: JP-PFIZER INC-2010157496

PATIENT
  Age: 62 Year
  Sex: Male
  Weight: 61 kg

DRUGS (5)
  1. THYRADIN S [Concomitant]
     Dosage: 12.5 UG, 1X/DAY
     Route: 048
     Dates: start: 20090703, end: 20100629
  2. SUNITINIB MALATE [Suspect]
     Indication: RENAL CELL CARCINOMA
     Dosage: 25 MG, 1X/DAY
     Route: 048
     Dates: start: 20090115, end: 20100203
  3. MARZULENE S [Concomitant]
     Dosage: 0.5 G, 3X/DAY
     Route: 048
     Dates: start: 20090605, end: 20100204
  4. GASLON [Concomitant]
     Dosage: 4 MG, 1X/DAY
     Route: 048
     Dates: start: 20090522, end: 20100204
  5. GASTER [Concomitant]
     Dosage: 10 MG, 2X/DAY
     Route: 048
     Dates: start: 20090128, end: 20100204

REACTIONS (2)
  - ANAEMIA [None]
  - OESOPHAGEAL ULCER [None]
